FAERS Safety Report 7483176-1 (Version None)
Quarter: 2011Q2

REPORT INFORMATION
  Report Type: 
  Country: None (occurrence: None)
  Receive Date: 20110516
  Receipt Date: 20110511
  Transmission Date: 20111010
  Serious: Yes (Hospitalization)
  Sender: FDA-Public Use
  Company Number: US-GILEAD-2011-0035519

PATIENT
  Sex: Female

DRUGS (4)
  1. TADALAFIL [Concomitant]
  2. COUMADIN [Concomitant]
  3. LETAIRIS [Suspect]
     Indication: PULMONARY HYPERTENSION
     Route: 048
     Dates: start: 20110105
  4. ZOLOFT [Concomitant]

REACTIONS (3)
  - FLUID RETENTION [None]
  - DIZZINESS [None]
  - DYSPNOEA [None]
